FAERS Safety Report 9307661 (Version 1)
Quarter: 2013Q2

REPORT INFORMATION
  Report Type: Spontaneous
  Country: US (occurrence: US)
  Receive Date: 20130524
  Receipt Date: 20130524
  Transmission Date: 20140414
  Serious: Yes (Hospitalization)
  Sender: FDA-Public Use
  Company Number: US-BAYER-2013-064555

PATIENT
  Age: 44 Year
  Sex: Female

DRUGS (5)
  1. YASMIN [Suspect]
  2. FOLIC ACID [Concomitant]
  3. BENICAR [Concomitant]
  4. ACTOS [Concomitant]
  5. METFORMIN [Concomitant]

REACTIONS (1)
  - Deep vein thrombosis [None]
